FAERS Safety Report 25128250 (Version 1)
Quarter: 2025Q1

REPORT INFORMATION
  Report Type: Spontaneous
  Country: US (occurrence: US)
  Receive Date: 20250327
  Receipt Date: 20250327
  Transmission Date: 20250408
  Serious: Yes (Other)
  Sender: RK PHARMA
  Company Number: US-RK PHARMA, INC-20250300043

PATIENT

DRUGS (2)
  1. MITOMYCIN [Suspect]
     Active Substance: MITOMYCIN
     Indication: Cataract operation
     Route: 065
  2. MITOMYCIN [Suspect]
     Active Substance: MITOMYCIN
     Indication: Stent placement

REACTIONS (1)
  - Retinal toxicity [Unknown]
